FAERS Safety Report 6946270-7 (Version None)
Quarter: 2010Q3

REPORT INFORMATION
  Report Type: 
  Country: None (occurrence: None)
  Receive Date: 20100827
  Receipt Date: 20100818
  Transmission Date: 20110219
  Serious: Yes (Hospitalization)
  Sender: FDA-Public Use
  Company Number: US-ABBOTT-10P-163-0665156-00

PATIENT
  Sex: Male
  Weight: 70.37 kg

DRUGS (3)
  1. HUMIRA [Suspect]
     Indication: COLITIS ULCERATIVE
     Dates: start: 20070101, end: 20080101
  2. ASACOL [Concomitant]
     Indication: COLITIS ULCERATIVE
  3. PREDNISONE [Concomitant]
     Indication: CROHN'S DISEASE

REACTIONS (4)
  - GASTROINTESTINAL DISORDER [None]
  - INCISION SITE INFECTION [None]
  - INTESTINAL OBSTRUCTION [None]
  - PYREXIA [None]
